FAERS Safety Report 18865061 (Version 2)
Quarter: 2021Q1

REPORT INFORMATION
  Report Type: Spontaneous
  Country: US (occurrence: US)
  Receive Date: 20210209
  Receipt Date: 20210314
  Transmission Date: 20210420
  Serious: No
  Sender: FDA-Public Use
  Company Number: US-SA-2021SA039284

PATIENT
  Age: 44 Year
  Sex: Female

DRUGS (1)
  1. DUPIXENT [Suspect]
     Active Substance: DUPILUMAB
     Indication: DERMATITIS ATOPIC
     Dosage: 300 MG, QOW
     Route: 058
     Dates: start: 20201217

REACTIONS (10)
  - Skin exfoliation [Unknown]
  - Dry skin [Unknown]
  - Peripheral coldness [Unknown]
  - Paraesthesia [Unknown]
  - Rash [Recovering/Resolving]
  - Hand dermatitis [Unknown]
  - Sensory disturbance [Unknown]
  - Skin reaction [Unknown]
  - Blister [Unknown]
  - Pruritus [Unknown]

NARRATIVE: CASE EVENT DATE: 202012
